FAERS Safety Report 7642142-3 (Version None)
Quarter: 2011Q3

REPORT INFORMATION
  Report Type: 
  Country: None (occurrence: None)
  Receive Date: 20110728
  Receipt Date: 20110718
  Transmission Date: 20111222
  Serious: Yes (Hospitalization)
  Sender: FDA-Public Use
  Company Number: FR-UCBSA-037352

PATIENT
  Sex: Female

DRUGS (9)
  1. OKIMUS [Concomitant]
     Indication: MUSCLE SPASMS
     Route: 048
  2. OKIMUS [Concomitant]
     Route: 048
  3. INNOVAR [Concomitant]
     Indication: ASTHMA
     Route: 048
  4. EZETIMIBE [Concomitant]
     Indication: HYPERCHOLESTEROLAEMIA
     Route: 048
  5. LASIX [Suspect]
     Indication: HYPERTENSION
     Route: 048
  6. EUPRESSYL [Suspect]
     Indication: HYPERTENSION
     Dosage: 30MG
     Route: 048
  7. NITROGLYCERIN [Suspect]
     Indication: ANGINA PECTORIS
     Route: 062
  8. POTASSIUM CHLORIDE [Concomitant]
     Indication: HYPOKALAEMIA
     Route: 048
  9. LAMALINE [Concomitant]
     Indication: PAIN
     Route: 048

REACTIONS (5)
  - NAUSEA [None]
  - HYPERHIDROSIS [None]
  - PALLOR [None]
  - MALAISE [None]
  - CONFUSIONAL STATE [None]
